FAERS Safety Report 16046089 (Version 2)
Quarter: 2019Q1

REPORT INFORMATION
  Report Type: Report from Study
  Country: US (occurrence: US)
  Receive Date: 20190307
  Receipt Date: 20190325
  Transmission Date: 20190418
  Serious: Yes (Disabling, Other)
  Sender: FDA-Public Use
  Company Number: US-SA-2019SA058086

PATIENT
  Age: 58 Year
  Sex: Female

DRUGS (1)
  1. INSULIN GLARGINE [Suspect]
     Active Substance: INSULIN GLARGINE
     Indication: DIABETES MELLITUS
     Dosage: 88 U, QD
     Route: 058

REACTIONS (13)
  - Fall [Unknown]
  - Amnesia [Recovered/Resolved]
  - Product dose omission [Unknown]
  - Device issue [Unknown]
  - Disability [Not Recovered/Not Resolved]
  - Nephrolithiasis [Not Recovered/Not Resolved]
  - Scratch [Recovered/Resolved]
  - Blood glucose increased [Not Recovered/Not Resolved]
  - Splenomegaly [Unknown]
  - Sinus headache [Not Recovered/Not Resolved]
  - Renal pain [Not Recovered/Not Resolved]
  - Vaginal haemorrhage [Not Recovered/Not Resolved]
  - Stress [Not Recovered/Not Resolved]

NARRATIVE: CASE EVENT DATE: 2018
